FAERS Safety Report 17070492 (Version 1)
Quarter: 2019Q4

REPORT INFORMATION
  Report Type: Spontaneous
  Country: CN (occurrence: CN)
  Receive Date: 20191125
  Receipt Date: 20191125
  Transmission Date: 20200122
  Serious: Yes (Hospitalization, Other)
  Sender: FDA-Public Use
  Company Number: CN-SCIEGEN PHARMACEUTICALS INC-2019SCILIT00363

PATIENT
  Age: 6 Year
  Sex: Male

DRUGS (7)
  1. AMOXICILLIN. [Suspect]
     Active Substance: AMOXICILLIN
  2. S-ADENOSYL-L-METHIONINE [Interacting]
     Active Substance: ADEMETIONINE
  3. URSODEOXYCHOLIC ACID [Interacting]
     Active Substance: URSODIOL
  4. NAPROXEN SODIUM. [Suspect]
     Active Substance: NAPROXEN SODIUM
  5. PIEN TZE HUANG [Interacting]
     Active Substance: HERBALS
  6. METHYLPREDNISOLONE. [Interacting]
     Active Substance: METHYLPREDNISOLONE
  7. ALPROSTADIL. [Interacting]
     Active Substance: ALPROSTADIL

REACTIONS (2)
  - Stevens-Johnson syndrome [Recovered/Resolved]
  - Vanishing bile duct syndrome [Recovered/Resolved]
